FAERS Safety Report 13159503 (Version 4)
Quarter: 2019Q3

REPORT INFORMATION
  Report Type: Spontaneous
  Country: US (occurrence: US)
  Receive Date: 20170127
  Receipt Date: 20190917
  Transmission Date: 20191004
  Serious: Yes (Other)
  Sender: FDA-Public Use
  Company Number: US-ASTRAZENECA-2017SE08394

PATIENT
  Age: 60 Year
  Sex: Male
  Weight: 83.9 kg

DRUGS (28)
  1. AMOXICILLIN. [Concomitant]
     Active Substance: AMOXICILLIN
  2. TAMSULOSIN [Concomitant]
     Active Substance: TAMSULOSIN
  3. FLUOXETINE [Concomitant]
     Active Substance: FLUOXETINE HYDROCHLORIDE
  4. AVAPRO [Concomitant]
     Active Substance: IRBESARTAN
  5. SIMVASTATIN. [Concomitant]
     Active Substance: SIMVASTATIN
  6. AMOXICILLINE [Concomitant]
     Active Substance: AMOXICILLIN
  7. TYLENOL [Concomitant]
     Active Substance: ACETAMINOPHEN
  8. NEXIUM [Suspect]
     Active Substance: ESOMEPRAZOLE MAGNESIUM
     Indication: GASTRIC DISORDER
     Route: 048
     Dates: start: 2006, end: 2016
  9. AMLODIPINE [Concomitant]
     Active Substance: AMLODIPINE BESYLATE
  10. LOSARTAN. [Concomitant]
     Active Substance: LOSARTAN
  11. CLINDAMYCIN. [Concomitant]
     Active Substance: CLINDAMYCIN
  12. PEPTO-BISMOL [Concomitant]
     Active Substance: BISMUTH SUBSALICYLATE
  13. ATORVASTATIN [Concomitant]
     Active Substance: ATORVASTATIN
  14. NEXIUM [Suspect]
     Active Substance: ESOMEPRAZOLE MAGNESIUM
     Indication: GASTRIC DISORDER
     Route: 048
     Dates: start: 2000, end: 2015
  15. NEXIUM 24HR [Suspect]
     Active Substance: ESOMEPRAZOLE MAGNESIUM
     Indication: ABDOMINAL DISCOMFORT
     Route: 048
     Dates: start: 2014
  16. AZITHROMYCIN ANHYDROUS. [Concomitant]
     Active Substance: AZITHROMYCIN ANHYDROUS
  17. IRBESARTAN. [Concomitant]
     Active Substance: IRBESARTAN
  18. SPIRONOLACTONE. [Concomitant]
     Active Substance: SPIRONOLACTONE
  19. ASPIRIN. [Concomitant]
     Active Substance: ASPIRIN
  20. LEVOFLOXACIN. [Concomitant]
     Active Substance: LEVOFLOXACIN
  21. SPIRONOLACTONE. [Concomitant]
     Active Substance: SPIRONOLACTONE
  22. NEXIUM 24HR [Suspect]
     Active Substance: ESOMEPRAZOLE MAGNESIUM
     Indication: ABDOMINAL DISCOMFORT
     Route: 048
     Dates: start: 2010, end: 2014
  23. PRILOSEC [Suspect]
     Active Substance: OMEPRAZOLE MAGNESIUM
     Route: 048
  24. LOSARTAN. [Concomitant]
     Active Substance: LOSARTAN
  25. COQ10 [Concomitant]
     Active Substance: UBIDECARENONE
  26. TUMS [Concomitant]
     Active Substance: CALCIUM CARBONATE
  27. PRILOSEC OTC [Suspect]
     Active Substance: OMEPRAZOLE MAGNESIUM
     Indication: ABDOMINAL DISCOMFORT
     Route: 048
  28. LEVAQUIN [Concomitant]
     Active Substance: LEVOFLOXACIN

REACTIONS (6)
  - End stage renal disease [Unknown]
  - Renal failure [Unknown]
  - Renal injury [Unknown]
  - Tubulointerstitial nephritis [Unknown]
  - Acute kidney injury [Not Recovered/Not Resolved]
  - Chronic kidney disease [Not Recovered/Not Resolved]

NARRATIVE: CASE EVENT DATE: 2005
